FAERS Safety Report 8265901-5 (Version None)
Quarter: 2012Q2

REPORT INFORMATION
  Report Type: 
  Country: None (occurrence: None)
  Receive Date: 20120406
  Receipt Date: 20120402
  Transmission Date: 20120825
  Serious: Yes (Other)
  Sender: FDA-Public Use
  Company Number: DE-GLAXOSMITHKLINE-D0074981A

PATIENT
  Sex: Male
  Weight: 65 kg

DRUGS (4)
  1. LEVETIRACETAM [Concomitant]
     Indication: EPILEPSY
     Dosage: 3000MG PER DAY
     Route: 048
  2. POTIGA [Suspect]
     Indication: EPILEPSY
     Dosage: 1000MG PER DAY
     Route: 048
     Dates: start: 20110801
  3. FRISIUM [Concomitant]
     Indication: EPILEPSY
     Dosage: 15MG PER DAY
     Route: 048
  4. OXCARBAZEPINE [Concomitant]
     Indication: EPILEPSY
     Dosage: 1500MG PER DAY
     Route: 048

REACTIONS (3)
  - HEART RATE INCREASED [None]
  - ELECTROCARDIOGRAM QT SHORTENED [None]
  - SINUS TACHYCARDIA [None]
